FAERS Safety Report 7584962-X (Version None)
Quarter: 2011Q2

REPORT INFORMATION
  Report Type: 
  Country: None (occurrence: None)
  Receive Date: 20110630
  Receipt Date: 20110624
  Transmission Date: 20111010
  Serious: Yes (Hospitalization)
  Sender: FDA-Public Use
  Company Number: CN-ABBOTT-11P-035-0834747-00

PATIENT
  Age: 38 Year
  Sex: Female

DRUGS (3)
  1. VALPROATE SODIUM [Suspect]
     Indication: EPILEPSY
     Dates: start: 20040101
  2. PHENYTOIN [Interacting]
     Indication: EPILEPSY
     Dates: start: 20090913
  3. CARBAMAZEPINE [Concomitant]
     Indication: EPILEPSY
     Dates: start: 20040101, end: 20090705

REACTIONS (2)
  - DRUG INTERACTION [None]
  - STEVENS-JOHNSON SYNDROME [None]
